FAERS Safety Report 5186947-X (Version None)
Quarter: 2006Q4

REPORT INFORMATION
  Report Type: 
  Country: None (occurrence: None)
  Receive Date: 20061212
  Receipt Date: 20061129
  Transmission Date: 20070319
  Serious: Yes (Other)
  Sender: FDA-Public Use
  Company Number: 2006-150638-NL

PATIENT
  Age: 35 Year
  Sex: Female

DRUGS (15)
  1. PUREGON [Suspect]
     Indication: OVULATION INDUCTION
     Dates: start: 20060917, end: 20060925
  2. UHCG [Suspect]
     Indication: OVULATION INDUCTION
     Dosage: 1000 IU ONCE INTRAMUSCULAR
     Route: 030
     Dates: start: 20060926, end: 20060926
  3. ORGALUTRAN [Concomitant]
  4. PROGESTERONE [Concomitant]
  5. PROGESTERONE [Concomitant]
  6. MULTI-VITAMIN [Concomitant]
  7. FOLIC ACID [Concomitant]
  8. DOXYCYCLINE [Concomitant]
  9. LIDOCAINE 1% [Concomitant]
  10. MIDAZOLAM HYDROCHLORIDE [Concomitant]
  11. FENTANYL [Concomitant]
  12. PROPOFOL [Concomitant]
  13. MORPHINE SULFATE [Concomitant]
  14. TYLENOL [Concomitant]
  15. PRENATAL VITAMINS [Concomitant]

REACTIONS (1)
  - OVARIAN TORSION [None]
